FAERS Safety Report 15930990 (Version 1)
Quarter: 2019Q1

REPORT INFORMATION
  Report Type: Spontaneous
  Country: US (occurrence: US)
  Receive Date: 20190116
  Receipt Date: 20190116
  Transmission Date: 20190417
  Serious: No
  Sender: FDA-Public Use
  Company Number: None

PATIENT
  Age: 37 Year
  Sex: Female

DRUGS (1)
  1. COSENTYX [Suspect]
     Active Substance: SECUKINUMAB
     Indication: POLYARTHRITIS
     Route: 058
     Dates: start: 20190112

REACTIONS (3)
  - Product label confusion [None]
  - Product dispensing error [None]
  - Device dispensing error [None]

NARRATIVE: CASE EVENT DATE: 20190116
